FAERS Safety Report 6666128-0 (Version None)
Quarter: 2010Q2

REPORT INFORMATION
  Report Type: 
  Country: None (occurrence: None)
  Receive Date: 20100402
  Receipt Date: 20100325
  Transmission Date: 20101027
  Serious: Yes (Other)
  Sender: FDA-Public Use
  Company Number: PHHY2010JP18308

PATIENT
  Sex: Female

DRUGS (9)
  1. DIOVAN [Suspect]
     Dosage: 80 MG, QD
     Route: 048
     Dates: start: 20080519, end: 20080603
  2. DIOVAN [Suspect]
     Dosage: 80 MG, BID
     Route: 048
     Dates: start: 20080604
  3. TENORMIN [Concomitant]
     Indication: HYPERTENSION
     Dosage: UNK
     Route: 048
  4. LASIX [Concomitant]
     Indication: HYPERTENSION
     Dosage: UNK
     Route: 048
     Dates: start: 20030820
  5. AMLODIPINE [Concomitant]
     Indication: HYPERTENSION
     Dosage: UNK
     Route: 048
     Dates: start: 20081007
  6. WARFARIN SODIUM [Concomitant]
     Dosage: UNK
     Route: 048
  7. PANALDINE [Concomitant]
     Dosage: UNK
     Route: 048
     Dates: end: 20080924
  8. BEPRICOR [Concomitant]
     Dosage: UNK
     Route: 048
     Dates: start: 20070411
  9. URSO 250 [Concomitant]
     Dosage: UNK
     Route: 048
     Dates: start: 20071212

REACTIONS (1)
  - HYPERURICAEMIA [None]
